FAERS Safety Report 4493959-8 (Version None)
Quarter: 2004Q4

REPORT INFORMATION
  Report Type: 
  Country: None (occurrence: None)
  Receive Date: 20041104
  Receipt Date: 20041104
  Transmission Date: 20050328
  Serious: Yes (Other)
  Sender: FDA-Public Use
  Company Number: None

PATIENT
  Age: 71 Year
  Sex: Female
  Weight: 78.0187 kg

DRUGS (3)
  1. KAOPECTATE (PFIZER) [Suspect]
     Indication: DIARRHOEA
     Dosage: AS NEEDED FOR DIARRHEA
  2. ASPIRIN [Concomitant]
  3. PLAVIX [Concomitant]

REACTIONS (6)
  - ABDOMINAL PAIN [None]
  - DRUG INEFFECTIVE [None]
  - FAECES DISCOLOURED [None]
  - MEDICATION ERROR [None]
  - PHARMACEUTICAL PRODUCT COMPLAINT [None]
  - WEIGHT DECREASED [None]
